FAERS Safety Report 18827046 (Version 1)
Quarter: 2021Q1

REPORT INFORMATION
  Report Type: Spontaneous
  Country: FR (occurrence: FR)
  Receive Date: 20210202
  Receipt Date: 20210202
  Transmission Date: 20210419
  Serious: Yes (Hospitalization, Other)
  Sender: FDA-Public Use
  Company Number: FR-ASSERTIO THERAPEUTICS, INC.-FR-2021AST000020

PATIENT
  Age: 79 Year
  Sex: Male

DRUGS (1)
  1. INDOCIN [Suspect]
     Active Substance: INDOMETHACIN
     Indication: PRODUCT USED FOR UNKNOWN INDICATION
     Dosage: 75MG; ONE TABLET MORNING AND EVENING

REACTIONS (3)
  - Aphasia [Recovered/Resolved]
  - Encephalopathy [Recovered/Resolved]
  - Hemiparesis [Recovered/Resolved]

NARRATIVE: CASE EVENT DATE: 20190429
